FAERS Safety Report 7173016-2 (Version None)
Quarter: 2010Q4

REPORT INFORMATION
  Report Type: 
  Country: None (occurrence: None)
  Receive Date: 20101219
  Receipt Date: 20100218
  Transmission Date: 20110411
  Serious: Yes (Other)
  Sender: FDA-Public Use
  Company Number: US-AMGEN-QUU393804

PATIENT

DRUGS (2)
  1. ENBREL [Suspect]
     Indication: RHEUMATOID ARTHRITIS
     Dosage: 50 MG, QWK
     Route: 058
     Dates: start: 20020101
  2. HYDROXYCHLOROQUINE SULFATE [Concomitant]
     Dosage: 200 MG, TID
     Route: 048

REACTIONS (4)
  - BONE DISORDER [None]
  - HERPES ZOSTER [None]
  - INJECTION SITE HAEMATOMA [None]
  - PAIN [None]
